FAERS Safety Report 7500584-0 (Version None)
Quarter: 2011Q2

REPORT INFORMATION
  Report Type: 
  Country: None (occurrence: None)
  Receive Date: 20110517
  Receipt Date: 20110503
  Transmission Date: 20111010
  Serious: Yes (Other)
  Sender: FDA-Public Use
  Company Number: 2011PV000022

PATIENT
  Age: 67 Year
  Sex: Male

DRUGS (5)
  1. VINCRISTINE [Concomitant]
  2. DEPOCYT [Suspect]
     Indication: NEOPLASM PROPHYLAXIS
     Dosage: 50 MCG; 1X; INTH
     Route: 055
     Dates: start: 20081106, end: 20081106
  3. HYDROCORTISONE [Concomitant]
  4. RITUXIMAB [Concomitant]
  5. ADRIAMYCIN PFS [Concomitant]

REACTIONS (1)
  - CAUDA EQUINA SYNDROME [None]
